FAERS Safety Report 7965653-X (Version None)
Quarter: 2011Q4

REPORT INFORMATION
  Report Type: 
  Country: None (occurrence: None)
  Receive Date: 20111208
  Receipt Date: 20111129
  Transmission Date: 20120403
  Serious: Yes (Hospitalization)
  Sender: FDA-Public Use
  Company Number: PHHY2011PT96196

PATIENT
  Age: 66 Year
  Sex: Male

DRUGS (5)
  1. MYCOPHENOLATE MOFETIL [Suspect]
     Indication: RENAL TRANSPLANT
     Dosage: UNK UKN, UNK
  2. PREDNISOLONE [Suspect]
     Indication: RENAL TRANSPLANT
     Dosage: 25 MG/DAY
  3. PREDNISOLONE [Suspect]
     Dosage: 0.5 MG/KG, UNK
  4. CYCLOSPORINE [Suspect]
     Indication: RENAL TRANSPLANT
     Dosage: UNK UKN, UNK
  5. COTRIM [Concomitant]
     Dosage: UNK UKN, UNK

REACTIONS (29)
  - PLEURAL EFFUSION [None]
  - URINARY TRACT INFECTION [None]
  - ASTHENIA [None]
  - SKIN OEDEMA [None]
  - ENTEROCOCCAL INFECTION [None]
  - SKIN MASS [None]
  - PYELONEPHRITIS [None]
  - RESPIRATORY DISTRESS [None]
  - PSEUDOMONAS INFECTION [None]
  - OEDEMA PERIPHERAL [None]
  - HAEMATURIA [None]
  - CRYPTOCOCCAL CUTANEOUS INFECTION [None]
  - CELLULITIS [None]
  - LUNG INFILTRATION [None]
  - PYREXIA [None]
  - ULCER [None]
  - DERMATITIS [None]
  - TOXICITY TO VARIOUS AGENTS [None]
  - KIDNEY TRANSPLANT REJECTION [None]
  - COMPLICATIONS OF TRANSPLANTED KIDNEY [None]
  - SKIN LESION [None]
  - HYDRONEPHROSIS [None]
  - PYURIA [None]
  - BLOOD CREATININE INCREASED [None]
  - C-REACTIVE PROTEIN INCREASED [None]
  - LUNG NEOPLASM [None]
  - DIARRHOEA [None]
  - TUBULOINTERSTITIAL NEPHRITIS [None]
  - PAPULE [None]
